FAERS Safety Report 23530957 (Version 1)
Quarter: 2024Q1

REPORT INFORMATION
  Report Type: Report from Study
  Country: US (occurrence: None)
  Receive Date: 20240216
  Receipt Date: 20240216
  Transmission Date: 20240409
  Serious: Yes (Hospitalization)
  Sender: FDA-Public Use
  Company Number: 2024A036953

PATIENT
  Sex: Female

DRUGS (1)
  1. CALQUENCE [Suspect]
     Active Substance: ACALABRUTINIB
     Indication: Chronic lymphocytic leukaemia
     Route: 048
     Dates: start: 202309

REACTIONS (5)
  - Panic attack [Unknown]
  - Palpitations [Unknown]
  - Insomnia [Unknown]
  - Anaemia [Unknown]
  - Product dose omission issue [Unknown]
